FAERS Safety Report 7627888-5 (Version None)
Quarter: 2011Q3

REPORT INFORMATION
  Report Type: 
  Country: None (occurrence: None)
  Receive Date: 20110721
  Receipt Date: 20110713
  Transmission Date: 20111222
  Serious: Yes (Death, Life-Threatening, Hospitalization, Other)
  Sender: FDA-Public Use
  Company Number: US-RB-026546-11

PATIENT
  Age: 59 Year
  Sex: Male

DRUGS (2)
  1. SUBOXONE [Suspect]
     Dosage: SUBLINGUAL FILM / TAPER DOWN TO 8MG/DAILY
     Route: 060
     Dates: start: 20110501, end: 20110516
  2. SUBOXONE [Suspect]
     Indication: DRUG DEPENDENCE
     Dosage: SUBLINGUAL FILM
     Route: 060
     Dates: start: 20110301, end: 20110501

REACTIONS (9)
  - OEDEMA PERIPHERAL [None]
  - DYSPNOEA [None]
  - CARDIAC FAILURE [None]
  - RENAL FAILURE CHRONIC [None]
  - CARDIAC ARREST [None]
  - THERAPEUTIC RESPONSE UNEXPECTED [None]
  - CARDIAC DISORDER [None]
  - SUBSTANCE ABUSE [None]
  - CHEST PAIN [None]
